FAERS Safety Report 16747412 (Version 1)
Quarter: 2019Q3

REPORT INFORMATION
  Report Type: Spontaneous
  Country: FR (occurrence: FR)
  Receive Date: 20190827
  Receipt Date: 20190827
  Transmission Date: 20191005
  Serious: Yes (Other)
  Sender: FDA-Public Use
  Company Number: FR-NAPPMUNDI-GBR-2019-0069513

PATIENT
  Age: 69 Year
  Sex: Female
  Weight: 82 kg

DRUGS (26)
  1. HUMALOG [Concomitant]
     Active Substance: INSULIN LISPRO
  2. ATROPINE                           /00002802/ [Concomitant]
     Active Substance: ATROPINE
  3. CEFTAZIDIME. [Concomitant]
     Active Substance: CEFTAZIDIME
  4. FOSFOCINA                          /00552503/ [Concomitant]
  5. LOXEN [Concomitant]
  6. ALPRAZOLAM MYLAN [Suspect]
     Active Substance: ALPRAZOLAM
     Indication: PRODUCT USED FOR UNKNOWN INDICATION
     Dosage: 1 DF, DAILY
     Route: 048
     Dates: end: 20180907
  7. SPASFON                            /00765801/ [Concomitant]
     Active Substance: PHLOROGLUCINOL\1,3,5-TRIMETHOXYBENZENE
  8. IMOVANE [Suspect]
     Active Substance: ZOPICLONE
     Indication: PRODUCT USED FOR UNKNOWN INDICATION
     Dosage: 1 DF, DAILY
     Route: 048
     Dates: end: 20180907
  9. LEVOFLOXACINE [Suspect]
     Active Substance: LEVOFLOXACIN
     Indication: ENDOPHTHALMITIS
     Dosage: UNK
     Route: 041
     Dates: start: 20180901
  10. LEVOTHYROX [Concomitant]
     Active Substance: LEVOTHYROXINE
  11. VANCOMYCINE [Concomitant]
     Active Substance: VANCOMYCIN
  12. TRAMADOL HYDROCHLORIDE. [Concomitant]
     Active Substance: TRAMADOL HYDROCHLORIDE
  13. OXYNORMORO [Suspect]
     Active Substance: OXYCODONE HYDROCHLORIDE
     Indication: PAIN
     Dosage: 2 DF, DAILY  (STRENGTH 5 MG)
     Route: 048
     Dates: end: 20180908
  14. PARACETAMOL [Concomitant]
     Active Substance: ACETAMINOPHEN
  15. RENVELA [Concomitant]
     Active Substance: SEVELAMER CARBONATE
  16. RESIKALI [Concomitant]
     Active Substance: CALCIUM POLYSTYRENE SULFONATE
  17. CORDARONE [Concomitant]
     Active Substance: AMIODARONE HYDROCHLORIDE
  18. AERIUS (DESLORATADINE) [Concomitant]
     Active Substance: DESLORATADINE
  19. FUROSEMIDE TEVA [Concomitant]
     Active Substance: FUROSEMIDE
  20. CHIBRO CADRON [Concomitant]
     Active Substance: DEXAMETHASONE SODIUM PHOSPHATE\NEOMYCIN SULFATE
  21. INDOBIOTIC [Concomitant]
  22. STERDEX [Concomitant]
     Active Substance: DEXAMETHASONE\OXYTETRACYCLINE
  23. OXYNORMORO [Suspect]
     Active Substance: OXYCODONE HYDROCHLORIDE
     Dosage: 2 DF, DAILY  (STRENGTH 5 MG)
     Route: 048
     Dates: end: 20180908
  24. TIENAM [Suspect]
     Active Substance: CILASTATIN SODIUM\IMIPENEM
     Indication: ENDOPHTHALMITIS
     Dosage: 4 DF, DAILY
     Route: 041
     Dates: start: 20180901, end: 20180914
  25. INSULATARD                         /00646002/ [Concomitant]
     Active Substance: INSULIN HUMAN
  26. PREVISCAN                          /00261401/ [Concomitant]
     Active Substance: PENTOXIFYLLINE

REACTIONS (1)
  - Encephalopathy [Recovered/Resolved]

NARRATIVE: CASE EVENT DATE: 20180905
